FAERS Safety Report 10641144 (Version 1)
Quarter: 2014Q4

REPORT INFORMATION
  Report Type: Spontaneous
  Country: US (occurrence: None)
  Receive Date: 20141208
  Receipt Date: 20141208
  Transmission Date: 20150529
  Serious: No
  Sender: FDA-Public Use
  Company Number: None

PATIENT
  Age: 51 Year
  Sex: Male

DRUGS (1)
  1. CAPECITABINE 500MG TEVA PHARMACEUTICALS [Suspect]
     Active Substance: CAPECITABINE
     Indication: COLON CANCER
     Route: 048
     Dates: start: 20140826

REACTIONS (4)
  - Abdominal pain upper [None]
  - Dry skin [None]
  - Hyperaesthesia [None]
  - Dysphonia [None]
